FAERS Safety Report 19892611 (Version 5)
Quarter: 2021Q4

REPORT INFORMATION
  Report Type: Spontaneous
  Country: US (occurrence: US)
  Receive Date: 20210928
  Receipt Date: 20211105
  Transmission Date: 20220303
  Serious: Yes (Other)
  Sender: FDA-Public Use
  Company Number: US-ALLERGAN-2132295US

PATIENT
  Sex: Female

DRUGS (6)
  1. DURYSTA [Suspect]
     Active Substance: BIMATOPROST
     Indication: Glaucoma
     Dosage: 0.01 MG, SINGLE
     Route: 031
     Dates: start: 20210303, end: 20210819
  2. ALPHAGAN P [Concomitant]
     Active Substance: BRIMONIDINE TARTRATE
     Indication: Glaucoma
     Dosage: UNK, BID
  3. LUMIGAN [Concomitant]
     Active Substance: BIMATOPROST
     Indication: Glaucoma
     Dosage: UNK, QD
  4. TIMOLOL MALEATE [Concomitant]
     Active Substance: TIMOLOL MALEATE
     Indication: Glaucoma
     Dosage: UNK, QD
  5. SYSTANE BALANCE [Concomitant]
     Active Substance: PROPYLENE GLYCOL
     Indication: Dry eye
  6. LATANOPROST [Concomitant]
     Active Substance: LATANOPROST

REACTIONS (6)
  - Intra-ocular injection complication [Unknown]
  - Corneal oedema [Recovering/Resolving]
  - Corneal endotheliitis [Not Recovered/Not Resolved]
  - Corneal degeneration [Not Recovered/Not Resolved]
  - Foreign body sensation in eyes [Recovering/Resolving]
  - Eye pain [Recovering/Resolving]

NARRATIVE: CASE EVENT DATE: 20210301
